FAERS Safety Report 20835666 (Version 1)
Quarter: 2022Q2

REPORT INFORMATION
  Report Type: 
  Country: None (occurrence: None)
  Receive Date: 20220516
  Receipt Date: 20220516
  Transmission Date: 20220720
  Serious: No
  Sender: FDA-Public Use
  Company Number: CA-ROCHE-3091446

PATIENT

DRUGS (47)
  1. ACTEMRA [Suspect]
     Active Substance: TOCILIZUMAB
  2. RITUXIMAB [Suspect]
     Active Substance: RITUXIMAB
  3. TOCILIZUMAB [Suspect]
     Active Substance: TOCILIZUMAB
  4. RITUXIMAB [Suspect]
     Active Substance: RITUXIMAB
  5. ENBREL [Suspect]
     Active Substance: ETANERCEPT
  6. DICLOFENAC [Suspect]
     Active Substance: DICLOFENAC
  7. DESOXIMETASONE [Suspect]
     Active Substance: DESOXIMETASONE
  8. DESOXIMETASONE [Suspect]
     Active Substance: DESOXIMETASONE
  9. DESOXIMETASONE [Suspect]
     Active Substance: DESOXIMETASONE
  10. ARAVA [Suspect]
     Active Substance: LEFLUNOMIDE
  11. ARAVA [Suspect]
     Active Substance: LEFLUNOMIDE
  12. DICLOFENAC DIETHYLAMINE [Suspect]
     Active Substance: DICLOFENAC DIETHYLAMINE
  13. ETANERCEPT [Suspect]
     Active Substance: ETANERCEPT
  14. ACETAMINOPHEN [Suspect]
     Active Substance: ACETAMINOPHEN
  15. SULFASALAZINE [Suspect]
     Active Substance: SULFASALAZINE
  16. SULFASALAZINE [Suspect]
     Active Substance: SULFASALAZINE
  17. SULFASALAZINE [Suspect]
     Active Substance: SULFASALAZINE
  18. SULFASALAZINE [Suspect]
     Active Substance: SULFASALAZINE
  19. SULFASALAZINE [Suspect]
     Active Substance: SULFASALAZINE
  20. KEVZARA [Suspect]
     Active Substance: SARILUMAB
  21. CETIRIZINE HYDROCHLORIDE [Suspect]
     Active Substance: CETIRIZINE HYDROCHLORIDE
  22. CETIRIZINE HYDROCHLORIDE [Suspect]
     Active Substance: CETIRIZINE HYDROCHLORIDE
  23. PSEUDOEPHEDRINE HYDROCHLORIDE [Suspect]
     Active Substance: PSEUDOEPHEDRINE HYDROCHLORIDE
  24. SIMPONI [Suspect]
     Active Substance: GOLIMUMAB
  25. FOLIC ACID [Suspect]
     Active Substance: FOLIC ACID
  26. FOLIC ACID [Suspect]
     Active Substance: FOLIC ACID
  27. FOLIC ACID [Suspect]
     Active Substance: FOLIC ACID
  28. XELJANZ [Suspect]
     Active Substance: TOFACITINIB CITRATE
  29. CORTISONE ACETATE [Suspect]
     Active Substance: CORTISONE ACETATE
  30. CIMZIA [Suspect]
     Active Substance: CERTOLIZUMAB PEGOL
  31. ORENCIA [Suspect]
     Active Substance: ABATACEPT
  32. ORENCIA [Suspect]
     Active Substance: ABATACEPT
  33. PHTHALYLSULFATHIAZOLE [Suspect]
     Active Substance: PHTHALYLSULFATHIAZOLE
  34. PHTHALYLSULFATHIAZOLE [Suspect]
     Active Substance: PHTHALYLSULFATHIAZOLE
  35. PHTHALYLSULFATHIAZOLE [Suspect]
     Active Substance: PHTHALYLSULFATHIAZOLE
  36. CETIRIZINE HYDROCHLORIDE\PSEUDOEPHEDRINE HYDROCHLORIDE [Suspect]
     Active Substance: CETIRIZINE HYDROCHLORIDE\PSEUDOEPHEDRINE HYDROCHLORIDE
  37. PREDNISONE [Suspect]
     Active Substance: PREDNISONE
  38. PREDNISONE [Suspect]
     Active Substance: PREDNISONE
  39. METHOTREXATE [Suspect]
     Active Substance: METHOTREXATE
  40. METHOTREXATE [Suspect]
     Active Substance: METHOTREXATE
  41. METHOTREXATE [Suspect]
     Active Substance: METHOTREXATE
  42. METHOTREXATE [Suspect]
     Active Substance: METHOTREXATE
  43. ALENDRONATE SODIUM [Suspect]
     Active Substance: ALENDRONATE SODIUM
  44. HYDROXYCHLOROQUINE SULFATE [Suspect]
     Active Substance: HYDROXYCHLOROQUINE SULFATE
  45. HYDROXYCHLOROQUINE SULFATE [Suspect]
     Active Substance: HYDROXYCHLOROQUINE SULFATE
  46. STELARA [Suspect]
     Active Substance: USTEKINUMAB
  47. ADALIMUMAB [Suspect]
     Active Substance: ADALIMUMAB

REACTIONS (44)
  - Type 2 diabetes mellitus [None]
  - Rheumatic fever [None]
  - Swelling [None]
  - Systemic lupus erythematosus [None]
  - Hypersensitivity [None]
  - Synovitis [None]
  - Hand deformity [None]
  - Blood cholesterol increased [None]
  - Drug intolerance [None]
  - Abdominal discomfort [None]
  - Hypertension [None]
  - Wound [None]
  - Treatment failure [None]
  - Swollen joint count increased [None]
  - Rheumatoid arthritis [None]
  - Rash [None]
  - Anti-cyclic citrullinated peptide antibody positive [None]
  - Musculoskeletal stiffness [None]
  - Joint swelling [None]
  - General physical health deterioration [None]
  - Helicobacter infection [None]
  - Fatigue [None]
  - Drug ineffective [None]
  - Pain [None]
  - Pemphigus [None]
  - Hip arthroplasty [None]
  - Headache [None]
  - Therapeutic product effect decreased [None]
  - Pericarditis [None]
  - Rheumatoid factor positive [None]
  - Condition aggravated [None]
  - Arthropathy [None]
  - Duodenal ulcer perforation [None]
  - Hepatic enzyme increased [None]
  - Alopecia [None]
  - Arthralgia [None]
  - Discomfort [None]
  - Knee arthroplasty [None]
  - Infusion related reaction [None]
  - Glossodynia [None]
  - Contraindicated product administered [None]
  - Product use issue [None]
  - Maternal exposure during pregnancy [None]
  - Off label use [None]
